FAERS Safety Report 10615908 (Version 2)
Quarter: 2016Q2

REPORT INFORMATION
  Report Type: Report from Study
  Country: CA (occurrence: CA)
  Receive Date: 20141201
  Receipt Date: 20160530
  Transmission Date: 20160815
  Serious: Yes (Other)
  Sender: FDA-Public Use
  Company Number: CA-JNJFOC-20141117400

PATIENT
  Sex: Female
  Weight: 118 kg

DRUGS (1)
  1. REMICADE [Suspect]
     Active Substance: INFLIXIMAB
     Indication: PSORIATIC ARTHROPATHY
     Route: 042
     Dates: start: 201408

REACTIONS (4)
  - Haemorrhage [Unknown]
  - Infection [Not Recovered/Not Resolved]
  - Urticaria [Unknown]
  - Skin fissures [Unknown]

NARRATIVE: CASE EVENT DATE: 2014
